FAERS Safety Report 6218799-0 (Version None)
Quarter: 2009Q2

REPORT INFORMATION
  Report Type: 
  Country: None (occurrence: None)
  Receive Date: 20090608
  Receipt Date: 20090525
  Transmission Date: 20091009
  Serious: Yes (Congenital Anomaly)
  Sender: FDA-Public Use
  Company Number: SE-ELI_LILLY_AND_COMPANY-SE200905005776

PATIENT

DRUGS (3)
  1. FONTEX [Suspect]
     Indication: SCHIZOAFFECTIVE DISORDER
     Dosage: 20 MG, DAILY (1/D)
     Route: 064
  2. ZYPREXA [Suspect]
     Indication: SCHIZOAFFECTIVE DISORDER
     Dosage: 10 MG, DAILY (1/D)
     Route: 064
  3. ATARAX [Concomitant]
     Indication: SCHIZOAFFECTIVE DISORDER
     Dosage: 50 MG, DAILY (1/D)
     Route: 064

REACTIONS (3)
  - CONGENITAL MUSCULOSKELETAL ANOMALY [None]
  - DRUG EXPOSURE DURING PREGNANCY [None]
  - PREMATURE BABY [None]
